FAERS Safety Report 9160108 (Version 2)
Quarter: 2013Q2

REPORT INFORMATION
  Report Type: Spontaneous
  Country: US (occurrence: US)
  Receive Date: 20130313
  Receipt Date: 20130404
  Transmission Date: 20140414
  Serious: Yes (Hospitalization, Other)
  Sender: FDA-Public Use
  Company Number: US-B.I. PHARMACEUTICALS,INC./RIDGEFIELD-2013-BI-06204BP

PATIENT
  Age: 63 Year
  Sex: Female
  Weight: 66 kg

DRUGS (1)
  1. COMBIVENT [Suspect]
     Indication: LUNG DISORDER
     Route: 055
     Dates: start: 2003

REACTIONS (2)
  - Lung neoplasm malignant [Unknown]
  - Pulmonary embolism [Recovered/Resolved]
